FAERS Safety Report 13964223 (Version 2)
Quarter: 2017Q4

REPORT INFORMATION
  Report Type: Spontaneous
  Country: JP (occurrence: JP)
  Receive Date: 20170913
  Receipt Date: 20171009
  Transmission Date: 20180320
  Serious: Yes (Hospitalization, Other)
  Sender: FDA-Public Use
  Company Number: JP-BRISTOL-MYERS SQUIBB COMPANY-21294509

PATIENT
  Age: 84 Year
  Sex: Female

DRUGS (1)
  1. KENACORT [Suspect]
     Active Substance: TRIAMCINOLONE
     Indication: SCLERITIS
     Dosage: THERAPY DATES:08AUG,22AUG2013
     Route: 065

REACTIONS (1)
  - Panophthalmitis [Not Recovered/Not Resolved]

NARRATIVE: CASE EVENT DATE: 2013
